FAERS Safety Report 8531821-1 (Version None)
Quarter: 2012Q3

REPORT INFORMATION
  Report Type: 
  Country: None (occurrence: None)
  Receive Date: 20120716
  Receipt Date: 20120716
  Transmission Date: 20120928
  Serious: Yes (Other)
  Sender: FDA-Public Use
  Company Number: None

PATIENT
  Age: 59 Year
  Sex: Female

DRUGS (1)
  1. LATANOPROST [Suspect]
     Indication: OCULAR HYPERTENSION
     Dosage: ONE GTT OU QHS

REACTIONS (2)
  - PRODUCT SUBSTITUTION ISSUE [None]
  - EYE IRRITATION [None]
